FAERS Safety Report 9699344 (Version 2)
Quarter: 2013Q4

REPORT INFORMATION
  Report Type: Spontaneous
  Country: US (occurrence: US)
  Receive Date: 20131120
  Receipt Date: 20131120
  Transmission Date: 20140711
  Serious: No
  Sender: FDA-Public Use
  Company Number: US-GILEAD-2008-0015407

PATIENT
  Sex: Female
  Weight: 95.25 kg

DRUGS (13)
  1. LETAIRIS [Suspect]
     Indication: PULMONARY ARTERIAL HYPERTENSION
     Route: 048
     Dates: start: 20071218
  2. LETAIRIS [Suspect]
     Route: 048
     Dates: start: 20080310
  3. ALBUTEROL [Concomitant]
     Dosage: Q6H
     Route: 055
  4. JANUVIA [Concomitant]
     Route: 048
  5. XANAX [Concomitant]
     Route: 048
  6. PRILOSEC [Concomitant]
     Route: 048
  7. LEVOTHYROXINE [Concomitant]
     Route: 048
  8. DIOVAN HCT [Concomitant]
     Route: 048
  9. LORTAB [Concomitant]
     Route: 048
  10. LISINOPRIL [Concomitant]
     Route: 048
  11. DOXYCYCLINE [Concomitant]
     Route: 048
  12. METOPROLOL [Concomitant]
     Route: 048
  13. ASPIRIN [Concomitant]
     Route: 048

REACTIONS (1)
  - Liver function test abnormal [Not Recovered/Not Resolved]
